FAERS Safety Report 16399251 (Version 1)
Quarter: 2019Q2

REPORT INFORMATION
  Report Type: Spontaneous
  Country: US (occurrence: US)
  Receive Date: 20190606
  Receipt Date: 20190606
  Transmission Date: 20190711
  Serious: Yes (Other)
  Sender: FDA-Public Use
  Company Number: US-AMGEN-USASP2019085425

PATIENT
  Sex: Female
  Weight: 74.29 kg

DRUGS (14)
  1. XGEVA [Suspect]
     Active Substance: DENOSUMAB
     Indication: BREAST NEOPLASM
     Dosage: 120 MILLIGRAM, QMO
     Route: 058
     Dates: start: 20150303
  2. XGEVA [Suspect]
     Active Substance: DENOSUMAB
     Indication: METASTASES TO BONE
  3. FULVESTRANT. [Suspect]
     Active Substance: FULVESTRANT
     Indication: BREAST NEOPLASM
     Dosage: 500 MILLIGRAM, DAY 1, 15, 29 THEN MONTHLY
     Route: 065
  4. AMLODIPINE [Concomitant]
     Active Substance: AMLODIPINE BESYLATE
     Dosage: 5 MILLIGRAM
  5. CLOBETASOL 0.05% [Concomitant]
     Active Substance: CLOBETASOL
  6. LEVOTHYROXINE. [Concomitant]
     Active Substance: LEVOTHYROXINE
     Dosage: 50 MICROGRAM
  7. PALBOCICLIB [Concomitant]
     Active Substance: PALBOCICLIB
     Dosage: 125 MILLIGRAM
  8. SIMVASTATIN. [Concomitant]
     Active Substance: SIMVASTATIN
     Dosage: 80 MILLIGRAM
  9. IBRANCE [Concomitant]
     Active Substance: PALBOCICLIB
  10. POTASSIUM CHLORIDE. [Concomitant]
     Active Substance: POTASSIUM CHLORIDE
     Dosage: 20 MILLIEQUIVALENT
  11. PREDNISONE. [Concomitant]
     Active Substance: PREDNISONE
     Dosage: 10 MILLIGRAM
  12. CHLORTHALIDONE. [Concomitant]
     Active Substance: CHLORTHALIDONE
     Dosage: 25 MILLIGRAM
  13. FLOVENT HFA [Concomitant]
     Active Substance: FLUTICASONE PROPIONATE
     Dosage: 100 MCG/ACTUATION
  14. OMEPRAZOLE. [Concomitant]
     Active Substance: OMEPRAZOLE
     Dosage: 20 MICROGRAM

REACTIONS (17)
  - Rash [Recovered/Resolved]
  - Arthralgia [Unknown]
  - Decreased appetite [Unknown]
  - Blood creatinine increased [Unknown]
  - Nausea [Unknown]
  - Abdominal pain lower [Recovering/Resolving]
  - Sleep disorder [Unknown]
  - Pain [Unknown]
  - Breast cancer metastatic [Unknown]
  - Fatigue [Not Recovered/Not Resolved]
  - Pruritus [Unknown]
  - Abdominal distension [Unknown]
  - Constipation [Unknown]
  - Back pain [Unknown]
  - Musculoskeletal pain [Unknown]
  - Taste disorder [Unknown]
  - Liver function test increased [Unknown]

NARRATIVE: CASE EVENT DATE: 201609
